FAERS Safety Report 14658187 (Version 6)
Quarter: 2019Q2

REPORT INFORMATION
  Report Type: Spontaneous
  Country: CA (occurrence: CA)
  Receive Date: 20180320
  Receipt Date: 20190620
  Transmission Date: 20190711
  Serious: Yes (Hospitalization, Other)
  Sender: FDA-Public Use
  Company Number: CA-ROCHE-2093368

PATIENT
  Age: 33 Year
  Sex: Female

DRUGS (16)
  1. XOLAIR [Suspect]
     Active Substance: OMALIZUMAB
     Indication: ASTHMA
     Route: 058
     Dates: start: 20170627
  2. INFLUENZA VACCINE [Suspect]
     Active Substance: INFLUENZA VIRUS VACCINE
     Indication: PRODUCT USED FOR UNKNOWN INDICATION
     Dosage: UNK UKN, UNK
     Route: 065
     Dates: start: 20181010
  3. PULMICORT TURBUHALER [Concomitant]
     Active Substance: BUDESONIDE
     Indication: PRODUCT USED FOR UNKNOWN INDICATION
     Dosage: 1 DF, QD
     Route: 065
  4. ALVESCO [Concomitant]
     Active Substance: CICLESONIDE
     Indication: PRODUCT USED FOR UNKNOWN INDICATION
     Dosage: 2 DF, QD
     Route: 065
     Dates: start: 201710
  5. VENTOLIN [Concomitant]
     Active Substance: ALBUTEROL SULFATE
     Indication: PRODUCT USED FOR UNKNOWN INDICATION
     Dosage: 2 DF, QD
     Route: 065
     Dates: start: 19840314
  6. XOLAIR [Suspect]
     Active Substance: OMALIZUMAB
     Route: 058
     Dates: start: 20180305
  7. VENTOLIN [Concomitant]
     Active Substance: ALBUTEROL SULFATE
     Dosage: UNK UNK, PRN
     Route: 065
  8. IPRATROPIUM [Concomitant]
     Active Substance: IPRATROPIUM
     Indication: PRODUCT USED FOR UNKNOWN INDICATION
     Dosage: 2 DF, QID 4 TIMES DAILY
     Route: 065
  9. PREDNISONE. [Concomitant]
     Active Substance: PREDNISONE
     Indication: ANAPHYLAXIS PROPHYLAXIS
     Dosage: 50 MG, UNK
     Route: 065
  10. REACTINE [CETIRIZINE HYDROCHLORIDE] [Concomitant]
     Active Substance: CETIRIZINE HYDROCHLORIDE
     Indication: ANAPHYLAXIS PROPHYLAXIS
     Dosage: UNK UNK, QD
     Route: 065
     Dates: start: 2017
  11. XOLAIR [Suspect]
     Active Substance: OMALIZUMAB
     Route: 058
     Dates: start: 20180305
  12. ZENHALE [Concomitant]
     Active Substance: FORMOTEROL FUMARATE\MOMETASONE FUROATE
     Dosage: 100 MG, BID
     Route: 055
  13. ATROVENT [Concomitant]
     Active Substance: IPRATROPIUM BROMIDE
     Indication: PRODUCT USED FOR UNKNOWN INDICATION
     Dosage: 2 DF, QID
     Route: 065
     Dates: start: 20130922
  14. INCRUSE ELLIPTA [Concomitant]
     Active Substance: UMECLIDINIUM BROMIDE
     Indication: PRODUCT USED FOR UNKNOWN INDICATION
     Dosage: 1 DF, QD
     Route: 055
  15. XOLAIR [Suspect]
     Active Substance: OMALIZUMAB
     Route: 058
     Dates: start: 20190516, end: 20190516
  16. ZENHALE [Concomitant]
     Active Substance: FORMOTEROL FUMARATE\MOMETASONE FUROATE
     Indication: PRODUCT USED FOR UNKNOWN INDICATION
     Dosage: 200-5 UG
     Route: 065
     Dates: start: 20160401

REACTIONS (33)
  - Hypersensitivity [Recovering/Resolving]
  - Anaphylactic reaction [Recovered/Resolved]
  - Oral pruritus [Recovering/Resolving]
  - Asthma [Not Recovered/Not Resolved]
  - Urinary tract infection [Unknown]
  - Flushing [Recovered/Resolved]
  - Nasal turbinate hypertrophy [Unknown]
  - Coronavirus test positive [Unknown]
  - Sinus congestion [Recovering/Resolving]
  - Breath sounds abnormal [Unknown]
  - Chest discomfort [Unknown]
  - Emotional disorder [Unknown]
  - Upper respiratory tract infection [Unknown]
  - Gastritis [Unknown]
  - Smoke sensitivity [Unknown]
  - Sensitivity to weather change [Unknown]
  - Wheezing [Unknown]
  - Pruritus [Recovered/Resolved]
  - Peak expiratory flow rate decreased [Unknown]
  - Urticaria [Recovered/Resolved]
  - Productive cough [Unknown]
  - Eosinophil count increased [Unknown]
  - Dyspnoea [Unknown]
  - Lip swelling [Recovered/Resolved]
  - Paraesthesia [Unknown]
  - Rash [Recovered/Resolved]
  - Headache [Recovered/Resolved]
  - Muscular weakness [Recovered/Resolved]
  - Fatigue [Recovered/Resolved]
  - Blood pressure decreased [Recovered/Resolved]
  - Initial insomnia [Unknown]
  - Weight decreased [Unknown]
  - Forced expiratory volume decreased [Unknown]

NARRATIVE: CASE EVENT DATE: 20170627
